FAERS Safety Report 4281037-2 (Version None)
Quarter: 2004Q1

REPORT INFORMATION
  Report Type: 
  Country: None (occurrence: None)
  Receive Date: 20040129
  Receipt Date: 20030616
  Transmission Date: 20041129
  Serious: Yes (Other)
  Sender: FDA-Public Use
  Company Number: US-BRISTOL-MYERS SQUIBB COMPANY-12302279

PATIENT
  Age: 68 Year
  Sex: Female
  Weight: 87 kg

DRUGS (23)
  1. PLATINOL [Suspect]
     Indication: METASTATIC NEOPLASM
     Route: 033
     Dates: start: 20030613, end: 20030613
  2. VERSED [Concomitant]
     Indication: PREMEDICATION
     Dates: start: 20030613
  3. ROBINUL [Concomitant]
     Indication: PREMEDICATION
     Dates: start: 20030613
  4. REGLAN [Concomitant]
     Indication: PREMEDICATION
     Dates: start: 20030613
  5. PEPCID [Concomitant]
     Indication: PREMEDICATION
     Dates: start: 20030613
  6. LOPRESSOR [Concomitant]
     Indication: PREMEDICATION
     Dates: start: 20030613
  7. ISOFLURANE [Concomitant]
     Dosage: WITH SURGERY
     Dates: start: 20030613
  8. PROPOFOL [Concomitant]
     Dosage: WITH SURGERY
     Dates: start: 20030613
  9. SUCCINYLCHOLINE CHLORIDE [Concomitant]
     Dosage: WITH SURGERY
     Dates: start: 20030613
  10. PANCURONIUM BROMIDE [Concomitant]
     Dosage: WITH SURGERY
     Dates: start: 20030613
  11. FENTANYL [Concomitant]
     Dosage: WITH SURGERY
     Dates: start: 20030613
  12. DDAVP [Concomitant]
     Dosage: WITH SURGERY
     Dates: start: 20030613
  13. PHENYLEPHRINE [Concomitant]
     Dosage: WITH SURGERY
     Dates: start: 20030613
  14. MANNITOL [Concomitant]
     Dosage: WITH SURGERY
     Dates: start: 20030613
  15. FUROSEMIDE [Concomitant]
     Dosage: WITH SURGERY
     Dates: start: 20030613
  16. INDIGO CARMINE [Concomitant]
     Dosage: WITH SURGERY
     Dates: start: 20030613
  17. CORGARD [Concomitant]
  18. CARDIZEM [Concomitant]
  19. PREMARIN [Concomitant]
  20. BUMEX [Concomitant]
  21. LIPITOR [Concomitant]
  22. ACTOS [Concomitant]
  23. METFORMIN HCL [Concomitant]

REACTIONS (1)
  - BLINDNESS [None]
